FAERS Safety Report 15139860 (Version 2)
Quarter: 2019Q2

REPORT INFORMATION
  Report Type: Spontaneous
  Country: US (occurrence: US)
  Receive Date: 20180713
  Receipt Date: 20190515
  Transmission Date: 20190711
  Serious: No
  Sender: FDA-Public Use
  Company Number: US-SA-2018SA187831

PATIENT
  Age: 53 Year
  Sex: Female

DRUGS (8)
  1. BACLOFEN. [Concomitant]
     Active Substance: BACLOFEN
     Dosage: 20 MG
  2. AUBAGIO [Suspect]
     Active Substance: TERIFLUNOMIDE
     Dosage: 14 MG, QD
     Route: 048
  3. KEPPRA [Concomitant]
     Active Substance: LEVETIRACETAM
     Dosage: 1000 MG
  4. ARICEPT [Concomitant]
     Active Substance: DONEPEZIL HYDROCHLORIDE
     Dosage: 23 MG
  5. CRANBERRY + C [Concomitant]
     Dosage: 500 MG
  6. SYNTHROID [Concomitant]
     Active Substance: LEVOTHYROXINE SODIUM
     Dosage: 75 UNK
  7. TRIMETHOPRIM. [Concomitant]
     Active Substance: TRIMETHOPRIM
     Dosage: 100 MG
  8. VITAMIN D [VITAMIN D NOS] [Concomitant]
     Active Substance: VITAMIN D NOS

REACTIONS (2)
  - Lethargy [Not Recovered/Not Resolved]
  - Asthenia [Not Recovered/Not Resolved]
